FAERS Safety Report 22334447 (Version 1)
Quarter: 2023Q2

REPORT INFORMATION
  Report Type: Spontaneous
  Country: US (occurrence: US)
  Receive Date: 20230517
  Receipt Date: 20230517
  Transmission Date: 20230722
  Serious: Yes (Other)
  Sender: FDA-Public Use
  Company Number: US-drreddys-SPO/USA/23/0165051

PATIENT
  Age: 14 Year
  Sex: Male

DRUGS (10)
  1. OLANZAPINE [Suspect]
     Active Substance: OLANZAPINE
     Indication: Schizophrenia
     Dosage: 4-5 MONTHS
     Route: 048
  2. OLANZAPINE [Suspect]
     Active Substance: OLANZAPINE
     Dosage: 4-5 MONTHS
  3. RISPERIDONE [Suspect]
     Active Substance: RISPERIDONE
     Indication: Schizophrenia
     Dosage: 7-8 MONTHS
  4. RISPERIDONE [Suspect]
     Active Substance: RISPERIDONE
     Dosage: CROSS-TAPERED
  5. RISPERIDONE [Suspect]
     Active Substance: RISPERIDONE
     Dosage: 7-8 MONTHS
  6. HALOPERIDOL [Suspect]
     Active Substance: HALOPERIDOL
     Indication: Schizophrenia
     Dosage: 4-5 MONTHS
  7. HALOPERIDOL [Suspect]
     Active Substance: HALOPERIDOL
     Dosage: 4-5 MONTHS
  8. AMISULPRIDE [Suspect]
     Active Substance: AMISULPRIDE
     Indication: Schizophrenia
     Dosage: 5-6 MONTHS
  9. ARIPIPRAZOLE [Suspect]
     Active Substance: ARIPIPRAZOLE
     Indication: Schizophrenia
  10. TRIFLUOPERAZINE [Suspect]
     Active Substance: TRIFLUOPERAZINE HYDROCHLORIDE
     Indication: Schizophrenia
     Dosage: 2-3 MONTHS

REACTIONS (2)
  - Tardive dyskinesia [Recovering/Resolving]
  - Extra dose administered [Unknown]
